FAERS Safety Report 15962258 (Version 4)
Quarter: 2019Q2

REPORT INFORMATION
  Report Type: Spontaneous
  Country: GR (occurrence: GR)
  Receive Date: 20190214
  Receipt Date: 20190402
  Transmission Date: 20190711
  Serious: Yes (Other)
  Sender: FDA-Public Use
  Company Number: GR-PFIZER INC-2019058464

PATIENT
  Age: 73 Year
  Sex: Male

DRUGS (2)
  1. DEXAMETHASONE. [Concomitant]
     Active Substance: DEXAMETHASONE
     Indication: PROSTATE CANCER STAGE IV
     Dosage: UNK, EVERY WEEK (OVER THE PREVIOUS 12 WEEKS)
  2. PACLITAXEL. [Suspect]
     Active Substance: PACLITAXEL
     Indication: PROSTATE CANCER STAGE IV
     Dosage: UNK UNK, EVERY WEEK (OVER THE PREVIOUS 12 WEEKS)

REACTIONS (1)
  - Cystoid macular oedema [Recovered/Resolved]
